FAERS Safety Report 6734965-X (Version None)
Quarter: 2010Q2

REPORT INFORMATION
  Report Type: 
  Country: None (occurrence: None)
  Receive Date: 20100521
  Receipt Date: 20100513
  Transmission Date: 20101027
  Serious: Yes (Other)
  Sender: FDA-Public Use
  Company Number: BR-PFIZER INC-2010055802

PATIENT
  Age: 29 Year
  Sex: Male

DRUGS (2)
  1. LIPITOR [Suspect]
     Indication: BLOOD CHOLESTEROL
     Dosage: 20 MG, 1X/DAY, HALF TABLET
     Route: 048
     Dates: start: 20091008
  2. LIPITOR [Suspect]
     Indication: PROPHYLAXIS

REACTIONS (5)
  - CHEST PAIN [None]
  - HEADACHE [None]
  - INFARCTION [None]
  - PARAESTHESIA [None]
  - VASODILATATION [None]
